FAERS Safety Report 25641412 (Version 1)
Quarter: 2025Q3

REPORT INFORMATION
  Report Type: Report from Study
  Country: US (occurrence: US)
  Receive Date: 20250804
  Receipt Date: 20250804
  Transmission Date: 20251021
  Serious: Yes (Other)
  Sender: MALLINCKRODT
  Company Number: US-MALLINCKRODT-MNK202504547

PATIENT
  Age: 50 Year
  Sex: Female

DRUGS (2)
  1. CORTICOTROPIN [Suspect]
     Active Substance: CORTICOTROPIN
     Indication: Systemic lupus erythematosus
  2. HYDROCORTISONE [Concomitant]
     Active Substance: HYDROCORTISONE

REACTIONS (9)
  - Meniscus injury [Unknown]
  - Thyroid disorder [Unknown]
  - Urinary incontinence [Recovering/Resolving]
  - Cerebral disorder [Unknown]
  - Bladder spasm [Recovering/Resolving]
  - Alopecia [Recovering/Resolving]
  - Sleep apnoea syndrome [Unknown]
  - Fluid retention [Not Recovered/Not Resolved]
  - Blood glucose increased [Unknown]

NARRATIVE: CASE EVENT DATE: 20250201
